FAERS Safety Report 4675003-2 (Version None)
Quarter: 2005Q2

REPORT INFORMATION
  Report Type: 
  Country: None (occurrence: None)
  Receive Date: 20050525
  Receipt Date: 20050512
  Transmission Date: 20051028
  Serious: Yes (Hospitalization)
  Sender: FDA-Public Use
  Company Number: 2005073925

PATIENT
  Sex: Male
  Weight: 74.8435 kg

DRUGS (7)
  1. NICOTROL [Suspect]
     Indication: SMOKING CESSATION THERAPY
     Dosage: 6-10 CARTRIDGES DAILY, INHALATION
     Route: 055
     Dates: start: 20010101
  2. OXYGEN (OXYGEN) [Concomitant]
  3. SALBUTAMOL (SALBUTAMOL) [Concomitant]
  4. ALPRAZOLAM [Concomitant]
  5. IPRATROPIUM BROMIDE [Concomitant]
  6. BUDESONIDE [Concomitant]
  7. HYDROCHLOROTHIAZIDE [Concomitant]

REACTIONS (2)
  - DRUG INEFFECTIVE [None]
  - RESPIRATORY ARREST [None]
